FAERS Safety Report 4603168-7 (Version None)
Quarter: 2005Q1

REPORT INFORMATION
  Report Type: 
  Country: None (occurrence: None)
  Receive Date: 20050307
  Receipt Date: 20050217
  Transmission Date: 20050727
  Serious: Yes (Death)
  Sender: FDA-Public Use
  Company Number: 212749

PATIENT
  Sex: Female

DRUGS (10)
  1. HERCEPTIN [Suspect]
     Indication: BREAST CANCER
     Dosage: SEE IMAGE
     Route: 042
     Dates: start: 20021001, end: 20031004
  2. HERCEPTIN [Suspect]
     Indication: BREAST CANCER
     Dosage: SEE IMAGE
     Route: 042
     Dates: end: 20050129
  3. HERCEPTIN [Suspect]
     Indication: BREAST CANCER
     Dosage: SEE IMAGE
     Route: 042
     Dates: start: 20031004
  4. ANTHRACYCLINE                     (ANTHRACYCLINE NOS) [Concomitant]
  5. CHEMOTHERAPY                (ANTINEOPLASTIC AGENT NOS) [Concomitant]
  6. ZOMETA           (ZOLDERONIC ACID) [Concomitant]
  7. GEMCITABINE                (GEMCITABINE HYDROCHLORIDE) [Concomitant]
  8. VINORELBINE             (VINORELBINE) [Concomitant]
  9. DIURETICS                (DIURETICS) [Concomitant]
  10. DIGITALIS CAP [Concomitant]

REACTIONS (7)
  - CARDIOTOXICITY [None]
  - CEREBRAL DISORDER [None]
  - CONVULSION [None]
  - EJECTION FRACTION DECREASED [None]
  - HEADACHE [None]
  - VERTIGO [None]
  - VOMITING [None]
